FAERS Safety Report 15620272 (Version 1)
Quarter: 2018Q4

REPORT INFORMATION
  Report Type: Spontaneous
  Country: SE (occurrence: SE)
  Receive Date: 20181115
  Receipt Date: 20181115
  Transmission Date: 20190205
  Serious: Yes (Hospitalization, Other)
  Sender: FDA-Public Use
  Company Number: SE-TEVA-2018-SE-975148

PATIENT
  Age: 69 Year
  Sex: Female

DRUGS (5)
  1. SALURES [Suspect]
     Active Substance: BENDROFLUMETHIAZIDE
     Indication: ESSENTIAL HYPERTENSION
     Dosage: 2.5 MILLIGRAM DAILY;
     Route: 048
     Dates: end: 20110420
  2. AMIMOX [Suspect]
     Active Substance: AMOXICILLIN
     Indication: BRONCHITIS
     Dosage: 750 MILLIGRAM DAILY; 2X/DAY
     Route: 048
     Dates: start: 20110418, end: 20110427
  3. METFORMIN HCL [Suspect]
     Active Substance: METFORMIN HYDROCHLORIDE
     Indication: DIABETES MELLITUS
     Dosage: 2 GRAM DAILY;
     Route: 048
     Dates: end: 20110420
  4. ENALAPRIL [Suspect]
     Active Substance: ENALAPRIL
     Indication: ESSENTIAL HYPERTENSION
     Dosage: 20 MILLIGRAM DAILY;
     Route: 048
     Dates: end: 20110420
  5. GLIMEPIRID ACTAVIS [Concomitant]
     Active Substance: GLIMEPIRIDE
     Route: 065

REACTIONS (4)
  - Bronchitis [Unknown]
  - Nausea [Unknown]
  - General physical health deterioration [Unknown]
  - Acute kidney injury [Recovered/Resolved]

NARRATIVE: CASE EVENT DATE: 20110418
